FAERS Safety Report 5709888-5 (Version None)
Quarter: 2008Q2

REPORT INFORMATION
  Report Type: 
  Country: None (occurrence: None)
  Receive Date: 20080418
  Receipt Date: 20070531
  Transmission Date: 20081010
  Serious: No
  Sender: FDA-Public Use
  Company Number: US-ASTRAZENECA-2007UW13301

PATIENT
  Age: 66 Year
  Sex: Female
  Weight: 58.1 kg

DRUGS (3)
  1. TOPROL-XL [Suspect]
     Route: 048
     Dates: start: 20040101
  2. PRAVACHOL [Concomitant]
  3. METANX [Concomitant]

REACTIONS (1)
  - MADAROSIS [None]
